FAERS Safety Report 5748658-9 (Version None)
Quarter: 2008Q2

REPORT INFORMATION
  Report Type: 
  Country: None (occurrence: None)
  Receive Date: 20080521
  Receipt Date: 20080516
  Transmission Date: 20081010
  Serious: Yes (Life-Threatening, Other)
  Sender: FDA-Public Use
  Company Number: CLOF-1000172

PATIENT
  Age: 72 Year
  Sex: Male

DRUGS (4)
  1. CLOLAR [Suspect]
     Indication: MYELOID LEUKAEMIA
     Dosage: 68 , QDX5, INTRAVENOUS; 34 , ONCE, INTRAVENOUS
     Route: 042
     Dates: start: 20080418, end: 20080422
  2. CLOLAR [Suspect]
     Indication: MYELOID LEUKAEMIA
     Dosage: 68 , QDX5, INTRAVENOUS; 34 , ONCE, INTRAVENOUS
     Route: 042
     Dates: start: 20080502, end: 20080502
  3. CYTARABINE [Suspect]
     Indication: MYELOID LEUKAEMIA
     Dosage: 3380 MG, QDX5, INTRAVENOUS; 3380 MG, ONCE, INTRAVENOUS
     Route: 042
     Dates: start: 20080418, end: 20080422
  4. CYTARABINE [Suspect]
     Indication: MYELOID LEUKAEMIA
     Dosage: 3380 MG, QDX5, INTRAVENOUS; 3380 MG, ONCE, INTRAVENOUS
     Route: 042
     Dates: start: 20080502, end: 20080502

REACTIONS (6)
  - ATRIAL FIBRILLATION [None]
  - BUNDLE BRANCH BLOCK RIGHT [None]
  - CARDIO-RESPIRATORY ARREST [None]
  - LIVER FUNCTION TEST ABNORMAL [None]
  - PULSE ABSENT [None]
  - TACHYCARDIA [None]
